FAERS Safety Report 13811657 (Version 1)
Quarter: 2017Q3

REPORT INFORMATION
  Report Type: Spontaneous
  Country: US (occurrence: US)
  Receive Date: 20170728
  Receipt Date: 20170728
  Transmission Date: 20171127
  Serious: No
  Sender: FDA-Public Use
  Company Number: US-ROCHE-1100231

PATIENT
  Sex: Female

DRUGS (1)
  1. BONIVA [Suspect]
     Active Substance: IBANDRONATE SODIUM
     Indication: OSTEOPENIA
     Route: 042

REACTIONS (8)
  - Insomnia [Unknown]
  - Osteopenia [Not Recovered/Not Resolved]
  - Rib fracture [Recovering/Resolving]
  - Stress [Unknown]
  - Loss of consciousness [Unknown]
  - Hernia repair [Recovering/Resolving]
  - Amnesia [Unknown]
  - Seizure [Unknown]
